FAERS Safety Report 9165015 (Version 2)
Quarter: 2013Q1

REPORT INFORMATION
  Report Type: Spontaneous
  Country: JP (occurrence: JP)
  Receive Date: 20130315
  Receipt Date: 20130329
  Transmission Date: 20140127
  Serious: Yes (Life-Threatening)
  Sender: FDA-Public Use
  Company Number: JP-EISAI INC-E2090-02551-SPO-JP

PATIENT
  Age: 59 Year
  Sex: Female

DRUGS (11)
  1. EXCEGRAN [Suspect]
     Indication: POSTOPERATIVE CARE
     Route: 048
     Dates: start: 20120521, end: 20120706
  2. LOXONIN [Concomitant]
     Indication: PRODUCT USED FOR UNKNOWN INDICATION
     Dosage: UNKNOWN
     Dates: end: 20120706
  3. PL (NON-PYRINE COLD PREPARATION) [Concomitant]
     Indication: PRODUCT USED FOR UNKNOWN INDICATION
     Dosage: UNKNOWN
     Dates: end: 20120706
  4. KEFRAL [Concomitant]
     Indication: PRODUCT USED FOR UNKNOWN INDICATION
     Dosage: UNKNOWN
     Dates: start: 20120704, end: 20120706
  5. ALESION [Concomitant]
     Indication: PRODUCT USED FOR UNKNOWN INDICATION
     Dosage: UNKNOWN
     Dates: start: 20120704, end: 20120706
  6. MUCOSTA [Concomitant]
     Indication: PRODUCT USED FOR UNKNOWN INDICATION
     Dosage: UNKNOWN
     Dates: start: 20120704, end: 20120706
  7. MEDICON [Concomitant]
     Indication: PRODUCT USED FOR UNKNOWN INDICATION
     Dosage: UNKNOWN
     Dates: start: 20120704, end: 20120706
  8. HERCEPTIN [Concomitant]
     Indication: BREAST CANCER
     Dosage: UNKNOWN
     Dates: end: 20120706
  9. HERCEPTIN [Concomitant]
     Indication: METASTASES TO LUNG
  10. HERCEPTIN [Concomitant]
     Indication: METASTASES TO BONE
  11. TAKEPRON [Concomitant]
     Indication: PRODUCT USED FOR UNKNOWN INDICATION
     Dosage: UNKNOWN
     Dates: end: 20120706

REACTIONS (1)
  - Drug reaction with eosinophilia and systemic symptoms [Recovering/Resolving]
